FAERS Safety Report 14336076 (Version 2)
Quarter: 2018Q1

REPORT INFORMATION
  Report Type: Spontaneous
  Country: JP (occurrence: JP)
  Receive Date: 20171229
  Receipt Date: 20180125
  Transmission Date: 20180509
  Serious: Yes (Hospitalization)
  Sender: FDA-Public Use
  Company Number: PHHY2017JP192497

PATIENT
  Age: 62 Year
  Sex: Male

DRUGS (5)
  1. FAMVIR [Suspect]
     Active Substance: FAMCICLOVIR
     Indication: HERPES ZOSTER
     Dosage: 250 MG, TID
     Route: 048
     Dates: start: 20171130, end: 20171201
  2. FAMVIR [Suspect]
     Active Substance: FAMCICLOVIR
     Dosage: 500 MG, QD
     Route: 048
     Dates: start: 20171202, end: 20171202
  3. FAMVIR [Suspect]
     Active Substance: FAMCICLOVIR
     Dosage: 500 MG, TID
     Route: 048
     Dates: start: 20171203, end: 20171205
  4. FAMVIR [Suspect]
     Active Substance: FAMCICLOVIR
     Dosage: 250 MG, BID
     Route: 048
     Dates: start: 20171202, end: 20171202
  5. STADERM [Concomitant]
     Indication: PRODUCT USED FOR UNKNOWN INDICATION
     Dosage: UNK
     Route: 062
     Dates: start: 20171130, end: 20171205

REACTIONS (1)
  - Altered state of consciousness [Recovered/Resolved]

NARRATIVE: CASE EVENT DATE: 20171205
